FAERS Safety Report 5094168-4 (Version None)
Quarter: 2006Q3

REPORT INFORMATION
  Report Type: 
  Country: None (occurrence: None)
  Receive Date: 20060831
  Receipt Date: 20060818
  Transmission Date: 20061208
  Serious: Yes (Other)
  Sender: FDA-Public Use
  Company Number: US-AVENTIS-200617011US

PATIENT
  Sex: Male
  Weight: 102 kg

DRUGS (2)
  1. KETEK [Suspect]
     Indication: BRONCHITIS
     Dates: start: 20050101, end: 20050101
  2. ACETAMINOPHEN [Suspect]
     Dosage: DOSE: UNK

REACTIONS (11)
  - CHILLS [None]
  - COLITIS [None]
  - GASTRITIS [None]
  - HEPATIC ENZYME INCREASED [None]
  - HEPATITIS [None]
  - INSOMNIA [None]
  - MALAISE [None]
  - NAUSEA [None]
  - OCULAR ICTERUS [None]
  - PRURITUS [None]
  - YELLOW SKIN [None]
